FAERS Safety Report 7332529-0 (Version None)
Quarter: 2011Q1

REPORT INFORMATION
  Report Type: 
  Country: None (occurrence: None)
  Receive Date: 20110304
  Receipt Date: 20110228
  Transmission Date: 20110831
  Serious: Yes (Death, Other)
  Sender: FDA-Public Use
  Company Number: US-PFIZER INC-2010064009

PATIENT
  Sex: Female

DRUGS (3)
  1. GABAPENTIN [Suspect]
     Dosage: 300 MG, UNK
     Dates: start: 20070403
  2. NEURONTIN [Suspect]
     Indication: BACK PAIN
     Dosage: 300 MG, UNK
     Dates: start: 20070308
  3. GABAPENTIN [Suspect]
     Indication: BACK PAIN
     Dosage: 300 MG, UNK
     Dates: start: 20070308

REACTIONS (2)
  - COMPLETED SUICIDE [None]
  - FEAR OF DEATH [None]
